FAERS Safety Report 4449108-5 (Version None)
Quarter: 2004Q3

REPORT INFORMATION
  Report Type: 
  Country: None (occurrence: None)
  Receive Date: 20040913
  Receipt Date: 20040825
  Transmission Date: 20050211
  Serious: Yes (Death, Hospitalization)
  Sender: FDA-Public Use
  Company Number: 198764

PATIENT
  Age: 42 Year
  Sex: Male
  Weight: 53.5244 kg

DRUGS (2)
  1. AVONEX [Suspect]
     Indication: MULTIPLE SCLEROSIS
     Dates: start: 20020118
  2. AVONEX [Suspect]
     Indication: MULTIPLE SCLEROSIS
     Dates: end: 20040204

REACTIONS (6)
  - DISEASE PROGRESSION [None]
  - MULTIPLE SCLEROSIS [None]
  - PNEUMONITIS [None]
  - QUADRIPARESIS [None]
  - SEPSIS [None]
  - URINARY TRACT INFECTION [None]
